FAERS Safety Report 21913733 (Version 1)
Quarter: 2023Q1

REPORT INFORMATION
  Report Type: Spontaneous
  Country: JP (occurrence: JP)
  Receive Date: 20230125
  Receipt Date: 20230125
  Transmission Date: 20230417
  Serious: Yes (Hospitalization, Other)
  Sender: FDA-Public Use
  Company Number: JP-CELLTRION INC.-2023JP001201

PATIENT

DRUGS (8)
  1. TRASTUZUMAB [Suspect]
     Active Substance: TRASTUZUMAB
     Indication: Invasive ductal breast carcinoma
     Dosage: INITIAL DOSE
     Route: 042
  2. TRASTUZUMAB [Suspect]
     Active Substance: TRASTUZUMAB
     Dosage: 2ND COURSE WAS ADMINISTERED 21 DAYS AFTER THE INITIAL DOSE
     Route: 042
  3. TRASTUZUMAB [Suspect]
     Active Substance: TRASTUZUMAB
     Dosage: ADMINISTRATION OF THE 4TH COURSE
     Route: 042
  4. TRASTUZUMAB [Suspect]
     Active Substance: TRASTUZUMAB
     Dosage: ADMINISTRATION IN THE 8TH COURSE
     Route: 042
  5. PACLITAXEL [Concomitant]
     Active Substance: PACLITAXEL
     Indication: Adjuvant therapy
     Dosage: WEEKLY
  6. TAMOXIFEN [Concomitant]
     Active Substance: TAMOXIFEN
     Indication: Adjuvant therapy
     Dosage: WEEKLY
  7. FEXOFENADINE HYDROCHLORIDE [Concomitant]
     Active Substance: FEXOFENADINE HYDROCHLORIDE
     Indication: Premedication
  8. DEXAMETHASONE [Concomitant]
     Active Substance: DEXAMETHASONE
     Indication: Psychotherapy
     Dosage: 8 MG, PLANNED TO BE ADMINISTERED ON DAYS 2 AND 3

REACTIONS (5)
  - Pulmonary toxicity [Recovering/Resolving]
  - SARS-CoV-2 test positive [Recovering/Resolving]
  - Hypoxia [Recovering/Resolving]
  - Pyrexia [Recovered/Resolved]
  - Pyrexia [Recovering/Resolving]
